FAERS Safety Report 5398668-9 (Version None)
Quarter: 2007Q3

REPORT INFORMATION
  Report Type: 
  Country: None (occurrence: None)
  Receive Date: 20070726
  Receipt Date: 20061212
  Transmission Date: 20080115
  Serious: No
  Sender: FDA-Public Use
  Company Number: US-AMGEN-KDL204309

PATIENT
  Sex: Female

DRUGS (1)
  1. PROCRIT [Suspect]
     Indication: ANAEMIA
     Route: 058
     Dates: start: 20060901

REACTIONS (2)
  - BACK PAIN [None]
  - PAIN IN EXTREMITY [None]
